FAERS Safety Report 8357423-8 (Version None)
Quarter: 2012Q2

REPORT INFORMATION
  Report Type: 
  Country: None (occurrence: None)
  Receive Date: 20120510
  Receipt Date: 20120501
  Transmission Date: 20120825
  Serious: Yes (Hospitalization)
  Sender: FDA-Public Use
  Company Number: 2012SP021781

PATIENT
  Sex: Female

DRUGS (1)
  1. CERAZETTE (DESOGESTREL /00754001/) [Suspect]
     Indication: PRODUCT USED FOR UNKNOWN INDICATION

REACTIONS (13)
  - VAGINAL HAEMORRHAGE [None]
  - DRUG WITHDRAWAL SYNDROME [None]
  - PAIN [None]
  - PELVIC PAIN [None]
  - NAUSEA [None]
  - ASTHENIA [None]
  - MALAISE [None]
  - FATIGUE [None]
  - FEELING ABNORMAL [None]
  - ABDOMINAL DISTENSION [None]
  - MUSCLE SPASMS [None]
  - SENSATION OF HEAVINESS [None]
  - AMENORRHOEA [None]
